FAERS Safety Report 14161440 (Version 2)
Quarter: 2018Q1

REPORT INFORMATION
  Report Type: Report from Study
  Country: FR (occurrence: FR)
  Receive Date: 20171106
  Receipt Date: 20180309
  Transmission Date: 20180508
  Serious: Yes (Death, Other)
  Sender: FDA-Public Use
  Company Number: FR-ROCHE-2020726

PATIENT
  Age: 71 Year
  Sex: Male

DRUGS (1)
  1. RITUXIMAB. [Suspect]
     Active Substance: RITUXIMAB
     Indication: NEPHROPATHY
     Dosage: AT WEEK 0, 1, 2 AND 3?INDUCTION
     Route: 042

REACTIONS (5)
  - Kaposi^s sarcoma [Fatal]
  - Intentional product use issue [Fatal]
  - Human herpesvirus 8 infection [Fatal]
  - Cytomegalovirus infection [Unknown]
  - Off label use [Fatal]
